FAERS Safety Report 9308615 (Version 2)
Quarter: 2014Q1

REPORT INFORMATION
  Report Type: Spontaneous
  Country: AR (occurrence: AR)
  Receive Date: 20130524
  Receipt Date: 20140326
  Transmission Date: 20141002
  Serious: Yes (Other)
  Sender: FDA-Public Use
  Company Number: AR-AMGEN-ARGSP2013036502

PATIENT
  Age: 55 Year
  Sex: Male

DRUGS (1)
  1. ENBREL [Suspect]
     Indication: RHEUMATOID ARTHRITIS
     Dosage: 50 MG, WEEKLY
     Route: 065
     Dates: start: 20070516

REACTIONS (4)
  - Mesenteric arterial occlusion [Not Recovered/Not Resolved]
  - Cardiovascular disorder [Recovered/Resolved]
  - Hypertension [Unknown]
  - Intervertebral disc disorder [Not Recovered/Not Resolved]
